FAERS Safety Report 17288098 (Version 1)
Quarter: 2020Q1

REPORT INFORMATION
  Report Type: Spontaneous
  Country: US (occurrence: US)
  Receive Date: 20200120
  Receipt Date: 20200120
  Transmission Date: 20200409
  Serious: Yes (Hospitalization)
  Sender: FDA-Public Use
  Company Number: US-JNJFOC-20200115429

PATIENT
  Age: 48 Year
  Sex: Female
  Weight: 81.64 kg

DRUGS (2)
  1. TYLENOL COLD PLUS FLU SEVERE [Suspect]
     Active Substance: ACETAMINOPHEN\DEXTROMETHORPHAN HYDROBROMIDE\GUAIFENESIN\PHENYLEPHRINE HYDROCHLORIDE
     Indication: MALAISE
     Dosage: 2 TABLETS EACH TIME TWICE A DAY AND ONE AT NIGHT
     Route: 048
     Dates: start: 20191226, end: 20191228
  2. PARACETAMOL/CHLORPHENIRAMINE MAL/DEXTROMETHORPHAN/PHENYLEPHRINE HCL [Suspect]
     Active Substance: ACETAMINOPHEN\CHLORPHENIRAMINE MALEATE\DEXTROMETHORPHAN\PHENYLEPHRINE HYDROCHLORIDE
     Indication: MALAISE
     Dosage: 2 TABLETS EACH TIME TWICE A DAY AND ONE AT NIGHT
     Route: 048
     Dates: start: 20191226, end: 20191228

REACTIONS (4)
  - Fall [Recovered/Resolved]
  - Cervical vertebral fracture [Recovered/Resolved]
  - Somnambulism [Recovered/Resolved]
  - Incorrect dose administered [Recovered/Resolved]

NARRATIVE: CASE EVENT DATE: 20191226
